FAERS Safety Report 6898768-8 (Version None)
Quarter: 2010Q3

REPORT INFORMATION
  Report Type: 
  Country: None (occurrence: None)
  Receive Date: 20100802
  Receipt Date: 20071127
  Transmission Date: 20110219
  Serious: No
  Sender: FDA-Public Use
  Company Number: US-PFIZER INC-2007096414

PATIENT
  Sex: Male
  Weight: 72.6 kg

DRUGS (12)
  1. LYRICA [Suspect]
     Indication: FIBROMYALGIA
  2. GABAPENTIN [Suspect]
     Indication: FIBROMYALGIA
  3. GABITRIL [Suspect]
     Indication: FIBROMYALGIA
  4. ANTIINFLAMMATORY/ANTIRHEUMATIC NON-STEROIDS [Suspect]
  5. MOTRIN [Concomitant]
  6. IBUPROFEN [Concomitant]
  7. ZOCOR [Concomitant]
  8. LISINOPRIL [Concomitant]
  9. DITROPAN [Concomitant]
  10. VITAMINS [Concomitant]
  11. VITACAL [Concomitant]
  12. SAW PALMETTO [Concomitant]

REACTIONS (4)
  - BLOOD CREATININE INCREASED [None]
  - DIZZINESS [None]
  - DRUG INEFFECTIVE [None]
  - PROTEIN URINE PRESENT [None]
